FAERS Safety Report 8067661-X (Version None)
Quarter: 2012Q1

REPORT INFORMATION
  Report Type: 
  Country: None (occurrence: None)
  Receive Date: 20120124
  Receipt Date: 20120117
  Transmission Date: 20120608
  Serious: Yes (Other)
  Sender: FDA-Public Use
  Company Number: IT-ELI_LILLY_AND_COMPANY-IT201112001617

PATIENT
  Sex: Female

DRUGS (12)
  1. BYETTA [Suspect]
     Indication: DIABETES MELLITUS
     Dosage: 5 UG, BID
     Dates: start: 20110614
  2. BYETTA [Suspect]
     Dosage: 10 UG, BID
     Dates: start: 20110624, end: 20111021
  3. METFORMIN HCL [Concomitant]
     Dosage: 1.5 G, UNKNOWN
  4. AMLODIPINE [Concomitant]
     Dosage: 10 MG, UNKNOWN
  5. DOXAZOSIN MESYLATE [Concomitant]
  6. ASPIRIN [Concomitant]
  7. CALCIUM CHANNEL BLOCKERS [Concomitant]
  8. ALLOPURINOL [Concomitant]
     Dosage: 150 MG, UNKNOWN
  9. VALSARTAN/HYDROCHLOORTHIAZIDE [Concomitant]
  10. LASIX [Concomitant]
  11. ATENOLOL [Concomitant]
     Dosage: 50 MG, UNKNOWN
  12. BYETTA [Suspect]
     Dosage: 10 UG, EACH EVENING
     Dates: start: 20110920

REACTIONS (7)
  - NAUSEA [None]
  - ALANINE AMINOTRANSFERASE INCREASED [None]
  - GAMMA-GLUTAMYLTRANSFERASE INCREASED [None]
  - WEIGHT DECREASED [None]
  - ASPARTATE AMINOTRANSFERASE INCREASED [None]
  - DECREASED APPETITE [None]
  - ASTHENIA [None]
